FAERS Safety Report 19840133 (Version 1)
Quarter: 2021Q3

REPORT INFORMATION
  Report Type: Spontaneous
  Country: CA (occurrence: CA)
  Receive Date: 20210915
  Receipt Date: 20210915
  Transmission Date: 20211014
  Serious: Yes (Death)
  Sender: FDA-Public Use
  Company Number: CA-TEVA-2021-CA-1951696

PATIENT
  Age: 54 Year
  Sex: Male
  Weight: 103 kg

DRUGS (6)
  1. ESCITALOPRAM [Suspect]
     Active Substance: ESCITALOPRAM OXALATE
     Route: 065
  2. FENTANYL. [Concomitant]
     Active Substance: FENTANYL
  3. RIVAROXABAN [Concomitant]
     Active Substance: RIVAROXABAN
     Route: 065
  4. METFORMIN [Suspect]
     Active Substance: METFORMIN HYDROCHLORIDE
     Route: 065
  5. MIDAZOLAM (UNKNOWN) [Concomitant]
     Active Substance: MIDAZOLAM HYDROCHLORIDE
  6. ROSUVASTATIN. [Concomitant]
     Active Substance: ROSUVASTATIN
     Route: 058

REACTIONS (5)
  - Intentional overdose [Fatal]
  - Metabolic acidosis [Fatal]
  - Completed suicide [Fatal]
  - Shock [Fatal]
  - Overdose [Fatal]
